FAERS Safety Report 20376163 (Version 2)
Quarter: 2022Q1

REPORT INFORMATION
  Report Type: Report from Study
  Country: CA (occurrence: CA)
  Receive Date: 20220125
  Receipt Date: 20220330
  Transmission Date: 20220423
  Serious: No
  Sender: FDA-Public Use
  Company Number: CA-KARYOPHARM-2022KPT000028

PATIENT
  Age: 59 Year
  Sex: Male

DRUGS (4)
  1. SELINEXOR [Suspect]
     Active Substance: SELINEXOR
     Indication: Plasma cell myeloma
     Dosage: 100 MG, ON DAYS 1, 8, 15, 22, 29
     Route: 048
     Dates: start: 20211207
  2. DEXAMETHASONE [Concomitant]
     Active Substance: DEXAMETHASONE
     Indication: Plasma cell myeloma
     Dosage: 20 MG ON DAYS 1, 2, 8, 9, 15, 16, 22, 23, 29, 30
     Route: 048
     Dates: start: 20211207
  3. BORTEZOMIB [Concomitant]
     Active Substance: BORTEZOMIB
     Indication: Plasma cell myeloma
     Dosage: 1.3 MG/M2, ON DAYS 1, 8, 15, 22 OF 5-WEEK CYCLE
     Route: 058
     Dates: start: 20211207
  4. METOCLOPRAMIDE HYDROCHLORIDE [Concomitant]
     Active Substance: METOCLOPRAMIDE HYDROCHLORIDE
     Indication: Antiemetic supportive care
     Dosage: UNK
     Route: 048

REACTIONS (3)
  - Fatigue [Not Recovered/Not Resolved]
  - Nausea [Recovering/Resolving]
  - Hordeolum [Recovering/Resolving]

NARRATIVE: CASE EVENT DATE: 20211209
